FAERS Safety Report 7190566-3 (Version None)
Quarter: 2010Q4

REPORT INFORMATION
  Report Type: 
  Country: None (occurrence: None)
  Receive Date: 20101221
  Receipt Date: 20101221
  Transmission Date: 20110411
  Serious: No
  Sender: FDA-Public Use
  Company Number: None

PATIENT
  Sex: Male
  Weight: 68.0396 kg

DRUGS (2)
  1. RISPERIDONE [Suspect]
     Indication: PSYCHOTIC DISORDER
     Dosage: 0.5MG DAILY PO
     Route: 048
     Dates: start: 20100101, end: 20100301
  2. QUETIAPINE [Suspect]
     Indication: PSYCHOTIC DISORDER
     Dosage: 25MG DAILY PO
     Route: 048
     Dates: start: 20100401, end: 20101101

REACTIONS (2)
  - SEDATION [None]
  - WEIGHT INCREASED [None]
